FAERS Safety Report 18321905 (Version 1)
Quarter: 2020Q3

REPORT INFORMATION
  Report Type: Spontaneous
  Country: BR (occurrence: BR)
  Receive Date: 20200928
  Receipt Date: 20200928
  Transmission Date: 20201103
  Serious: Yes (Other)
  Sender: FDA-Public Use
  Company Number: BR-BAYER-2020-199189

PATIENT
  Age: 41 Year
  Sex: Female

DRUGS (3)
  1. QLAIRA [Suspect]
     Active Substance: DIENOGEST\ESTRADIOL VALERATE
     Indication: MIGRAINE
  2. NEOZINE [LEVOMEPROMAZINE] [Concomitant]
     Indication: INSOMNIA
     Dosage: 5 GTT, QD, AT NIGHT
     Route: 048
     Dates: start: 20200908
  3. QLAIRA [Suspect]
     Active Substance: DIENOGEST\ESTRADIOL VALERATE
     Indication: CONTRACEPTION
     Dosage: 1 DF, QD
     Route: 048
     Dates: start: 202002, end: 20200908

REACTIONS (9)
  - Blood pressure increased [None]
  - Drug ineffective [None]
  - Headache [Recovering/Resolving]
  - Nausea [Not Recovered/Not Resolved]
  - Nephrolithiasis [None]
  - Pain in extremity [Recovering/Resolving]
  - Vomiting [Not Recovered/Not Resolved]
  - Pregnancy on oral contraceptive [Not Recovered/Not Resolved]
  - Abnormal withdrawal bleeding [Not Recovered/Not Resolved]

NARRATIVE: CASE EVENT DATE: 2020
